FAERS Safety Report 19693762 (Version 1)
Quarter: 2021Q3

REPORT INFORMATION
  Report Type: Spontaneous
  Country: CN (occurrence: CN)
  Receive Date: 20210812
  Receipt Date: 20210812
  Transmission Date: 20211014
  Serious: Yes (Hospitalization, Other)
  Sender: FDA-Public Use
  Company Number: CN-PFIZER INC-202100978045

PATIENT
  Age: 51 Year
  Sex: Female

DRUGS (1)
  1. CRIZOTINIB [Suspect]
     Active Substance: CRIZOTINIB
     Indication: LUNG ADENOCARCINOMA
     Dosage: 250 MG, 2X/DAY
     Route: 048
     Dates: start: 20210611, end: 20210710

REACTIONS (4)
  - Dizziness [Unknown]
  - Decreased appetite [Unknown]
  - Myelosuppression [Unknown]
  - Liver injury [Unknown]

NARRATIVE: CASE EVENT DATE: 2021
